FAERS Safety Report 9423300 (Version 1)
Quarter: 2013Q3

REPORT INFORMATION
  Report Type: Spontaneous
  Country: US (occurrence: US)
  Receive Date: 20130726
  Receipt Date: 20130726
  Transmission Date: 20140515
  Serious: Yes (Hospitalization)
  Sender: FDA-Public Use
  Company Number: US-BAYER-2013-089274

PATIENT
  Age: 28 Year
  Sex: Female

DRUGS (6)
  1. YASMIN [Suspect]
  2. ZITHROMAX [Concomitant]
  3. IBUPROFEN [Concomitant]
  4. MORPHINE [Concomitant]
  5. PERCOCET [Concomitant]
  6. DARVOCET-N [Concomitant]

REACTIONS (1)
  - Pulmonary embolism [None]
